FAERS Safety Report 12535019 (Version 2)
Quarter: 2016Q3

REPORT INFORMATION
  Report Type: Spontaneous
  Country: US (occurrence: US)
  Receive Date: 20160707
  Receipt Date: 20160817
  Transmission Date: 20161109
  Serious: Yes (Hospitalization, Other)
  Sender: FDA-Public Use
  Company Number: US-009507513-1607USA001404

PATIENT
  Sex: Male

DRUGS (11)
  1. AMLODIPINE BESYLATE. [Concomitant]
     Active Substance: AMLODIPINE BESYLATE
  2. ZEPATIER [Suspect]
     Active Substance: ELBASVIR\GRAZOPREVIR
     Dosage: ONCE DAILY
     Route: 048
     Dates: start: 20160518
  3. OMEPRAZOLE. [Concomitant]
     Active Substance: OMEPRAZOLE
  4. VIAGRA [Concomitant]
     Active Substance: SILDENAFIL CITRATE
  5. CHOLECALCIFEROL [Concomitant]
     Active Substance: CHOLECALCIFEROL
  6. REBETOL [Suspect]
     Active Substance: RIBAVIRIN
     Dosage: ONCE DAILY
     Route: 048
  7. METOPROLOL SUCCINATE. [Concomitant]
     Active Substance: METOPROLOL SUCCINATE
  8. PRINIVIL [Concomitant]
     Active Substance: LISINOPRIL
     Route: 048
  9. VITAMINS NOS [Concomitant]
     Active Substance: VITAMINS
  10. SODIUM BICARBONATE. [Concomitant]
     Active Substance: SODIUM BICARBONATE
  11. HYDROXYZINE [Concomitant]
     Active Substance: HYDROXYZINE\HYDROXYZINE HYDROCHLORIDE

REACTIONS (2)
  - Headache [Unknown]
  - Abscess limb [Unknown]

NARRATIVE: CASE EVENT DATE: 2016
